FAERS Safety Report 8223906-4 (Version None)
Quarter: 2012Q1

REPORT INFORMATION
  Report Type: 
  Country: None (occurrence: None)
  Receive Date: 20120312
  Receipt Date: 20120227
  Transmission Date: 20120608
  Serious: Yes (Hospitalization, Other)
  Sender: FDA-Public Use
  Company Number: 2009AL001699

PATIENT
  Sex: Female
  Weight: 72.5755 kg

DRUGS (25)
  1. HYDROCHLOROTHIAZIDE [Concomitant]
  2. OMACOR [Concomitant]
  3. CLINDAMYCIN [Concomitant]
  4. PANTOPRAZOLE [Concomitant]
  5. MIRALAX [Concomitant]
  6. LEVOTHYROXINE SODIUM [Concomitant]
  7. HYDROCODONE [Concomitant]
  8. AZITHROMYCIN [Concomitant]
  9. ACYCLOVIR [Concomitant]
  10. IBUPROFEN [Concomitant]
  11. CIPROFLOXACIN [Concomitant]
  12. DARVOCET [Concomitant]
  13. ACCUPRIL [Concomitant]
  14. TRIMOX [Concomitant]
  15. HUMIBID LA [Concomitant]
  16. QUINAPRIL [Concomitant]
  17. ZANTAC [Concomitant]
  18. ESTROGEN [Concomitant]
  19. PRILOSEC [Concomitant]
  20. DIGOXIN [Suspect]
     Indication: PRODUCT USED FOR UNKNOWN INDICATION
     Dosage: 250 MCG;QD;PO
     Route: 048
     Dates: start: 19971222, end: 20090819
  21. CHLOTRIMAZOLE-BETAMETHAZONE [Concomitant]
  22. GEMIFIBRIZIL [Concomitant]
  23. PROTONIX [Concomitant]
  24. VIVELLE [Concomitant]
  25. LISINOPRIL [Concomitant]

REACTIONS (57)
  - EMOTIONAL DISORDER [None]
  - AORTIC VALVE INCOMPETENCE [None]
  - ROTATOR CUFF SYNDROME [None]
  - RESPIRATORY RATE INCREASED [None]
  - HEPATIC STEATOSIS [None]
  - ECONOMIC PROBLEM [None]
  - MUSCULOSKELETAL PAIN [None]
  - PULMONARY VALVE INCOMPETENCE [None]
  - EXOSTOSIS [None]
  - ENTHESOPATHY [None]
  - PARAESTHESIA [None]
  - JOINT RANGE OF MOTION DECREASED [None]
  - FATIGUE [None]
  - OCCULT BLOOD POSITIVE [None]
  - ARTHRALGIA [None]
  - RASH VESICULAR [None]
  - BONE DISORDER [None]
  - SPLENOMEGALY [None]
  - FIBROCYSTIC BREAST DISEASE [None]
  - PAIN [None]
  - INJURY [None]
  - BACK PAIN [None]
  - LIPOMA [None]
  - FALL [None]
  - CYTOMEGALOVIRUS INFECTION [None]
  - HEPATIC ENZYME INCREASED [None]
  - OSTEOARTHRITIS [None]
  - GLOMERULAR FILTRATION RATE DECREASED [None]
  - FLATULENCE [None]
  - TRICUSPID VALVE INCOMPETENCE [None]
  - BLOOD TRIGLYCERIDES INCREASED [None]
  - HYPERHIDROSIS [None]
  - NECK PAIN [None]
  - GASTROOESOPHAGEAL REFLUX DISEASE [None]
  - HERPES ZOSTER [None]
  - EPSTEIN-BARR VIRUS INFECTION [None]
  - BLOOD UREA INCREASED [None]
  - AORTIC STENOSIS [None]
  - JOINT INJURY [None]
  - GLYCOSYLATED HAEMOGLOBIN INCREASED [None]
  - SPINAL OSTEOARTHRITIS [None]
  - RED BLOOD CELL SEDIMENTATION RATE INCREASED [None]
  - MALAISE [None]
  - HAEMATURIA [None]
  - EPIGASTRIC DISCOMFORT [None]
  - MUSCULOSKELETAL DISCOMFORT [None]
  - AORTIC VALVE CALCIFICATION [None]
  - ABDOMINAL TENDERNESS [None]
  - BLOOD CREATININE INCREASED [None]
  - HYPOAESTHESIA [None]
  - HIGH DENSITY LIPOPROTEIN DECREASED [None]
  - AORTIC ARTERIOSCLEROSIS [None]
  - VOMITING [None]
  - MYALGIA [None]
  - MITRAL VALVE INCOMPETENCE [None]
  - RECTAL POLYP [None]
  - BLOOD CHOLESTEROL INCREASED [None]
